FAERS Safety Report 15901431 (Version 2)
Quarter: 2024Q4

REPORT INFORMATION
  Report Type: Spontaneous
  Country: JP (occurrence: JP)
  Receive Date: 20190201
  Receipt Date: 20241105
  Transmission Date: 20250115
  Serious: Yes (Other)
  Sender: LUNDBECK
  Company Number: JP-SANOFI-2019SA022539

PATIENT

DRUGS (11)
  1. SABRIL [Suspect]
     Active Substance: VIGABATRIN
     Indication: Infantile spasms
     Dosage: 157.5 MILLIGRAM
     Route: 048
     Dates: start: 20170317, end: 20170509
  2. SABRIL [Suspect]
     Active Substance: VIGABATRIN
     Dosage: 350 MILLIGRAM
     Route: 048
     Dates: start: 20171025, end: 20171121
  3. SABRIL [Suspect]
     Active Substance: VIGABATRIN
     Dosage: 250 MILLIGRAM
     Route: 048
     Dates: start: 20171122, end: 20180710
  4. SABRIL [Suspect]
     Active Substance: VIGABATRIN
     Dosage: 200 MILLIGRAM
     Route: 048
     Dates: start: 20170510, end: 20170523
  5. SABRIL [Suspect]
     Active Substance: VIGABATRIN
     Dosage: 250 MILLIGRAM
     Route: 048
     Dates: start: 20170524, end: 20170530
  6. SABRIL [Suspect]
     Active Substance: VIGABATRIN
     Dosage: 300 MILLIGRAM
     Route: 048
     Dates: start: 20170531, end: 20170606
  7. SABRIL [Suspect]
     Active Substance: VIGABATRIN
     Dosage: 350 MILLIGRAM
     Route: 048
     Dates: start: 20170607, end: 20170613
  8. SABRIL [Suspect]
     Active Substance: VIGABATRIN
     Dosage: 450 MILLIGRAM
     Route: 048
     Dates: start: 20170614, end: 20170620
  9. SABRIL [Suspect]
     Active Substance: VIGABATRIN
     Dosage: 500 MILLIGRAM
     Route: 048
     Dates: start: 20170621, end: 20170704
  10. SABRIL [Suspect]
     Active Substance: VIGABATRIN
     Dosage: 550 MILLIGRAM
     Route: 048
     Dates: start: 20170705, end: 20171010
  11. SABRIL [Suspect]
     Active Substance: VIGABATRIN
     Dosage: 450 MILLIGRAM
     Route: 048
     Dates: start: 20171011, end: 20171024

REACTIONS (1)
  - Retinogram abnormal [Recovered/Resolved]

NARRATIVE: CASE EVENT DATE: 20180710
